FAERS Safety Report 6770557-4 (Version None)
Quarter: 2010Q2

REPORT INFORMATION
  Report Type: 
  Country: None (occurrence: None)
  Receive Date: 20100615
  Receipt Date: 20100602
  Transmission Date: 20101027
  Serious: Yes (Hospitalization, Other)
  Sender: FDA-Public Use
  Company Number: PHHO2010JP06899

PATIENT
  Sex: Male
  Weight: 54 kg

DRUGS (5)
  1. AIN457 AIN+INJ+PS [Suspect]
     Indication: PSORIASIS
     Dosage: DOUBLE BLIND
     Route: 058
     Dates: start: 20100105, end: 20100330
  2. AIN457 [Suspect]
     Indication: PSORIASIS
     Dosage: 150 MG
     Route: 058
     Dates: start: 20100330
  3. DIOVAN [Suspect]
     Indication: HYPERTENSION
     Dosage: 80 MG/DAY
     Route: 048
     Dates: start: 20091112, end: 20100427
  4. CONIEL [Suspect]
     Indication: HYPERTENSION
     Dosage: 4 MG, BID
     Route: 048
     Dates: start: 20091028, end: 20100427
  5. ALESION [Concomitant]
     Indication: PSORIASIS
     Dosage: 20 MG
     Route: 048
     Dates: start: 20091007, end: 20100427

REACTIONS (52)
  - ABDOMINAL TENDERNESS [None]
  - ALANINE AMINOTRANSFERASE INCREASED [None]
  - ASPARTATE AMINOTRANSFERASE INCREASED [None]
  - ASTHENIA [None]
  - BACK PAIN [None]
  - BLOOD CREATINE PHOSPHOKINASE INCREASED [None]
  - BLOOD GLUCOSE INCREASED [None]
  - BRONCHIAL WALL THICKENING [None]
  - CARDIAC DISORDER [None]
  - CARDIAC OUTPUT DECREASED [None]
  - CARDIOMEGALY [None]
  - CARDIOVASCULAR DISORDER [None]
  - CHEST DISCOMFORT [None]
  - DEVICE RELATED INFECTION [None]
  - DYSPHAGIA [None]
  - DYSPNOEA [None]
  - ELECTROCARDIOGRAM T WAVE ABNORMAL [None]
  - ELECTROCARDIOGRAM T WAVE INVERSION [None]
  - ENDOTRACHEAL INTUBATION [None]
  - FEEDING TUBE COMPLICATION [None]
  - FEELING ABNORMAL [None]
  - HAEMOPHILUS INFECTION [None]
  - HILAR LYMPHADENOPATHY [None]
  - INFLAMMATION [None]
  - LEFT VENTRICULAR DYSFUNCTION [None]
  - LUNG INFILTRATION [None]
  - LYMPHADENOPATHY MEDIASTINAL [None]
  - MALAISE [None]
  - MECHANICAL VENTILATION [None]
  - METABOLIC ACIDOSIS [None]
  - MUSCULOSKELETAL PAIN [None]
  - MYALGIA [None]
  - NECK PAIN [None]
  - NON-CARDIAC CHEST PAIN [None]
  - OXYGEN SATURATION DECREASED [None]
  - PAIN [None]
  - PERICARDIAL EFFUSION [None]
  - PLEURAL EFFUSION [None]
  - PNEUMONIA STREPTOCOCCAL [None]
  - POLYMYOSITIS [None]
  - PULSE ABSENT [None]
  - PYREXIA [None]
  - RESPIRATORY DISORDER [None]
  - RESPIRATORY DISTRESS [None]
  - RESPIRATORY FAILURE [None]
  - RHABDOMYOLYSIS [None]
  - SEPTIC SHOCK [None]
  - SPUTUM RETENTION [None]
  - TACHYPNOEA [None]
  - TRACHEOSTOMY [None]
  - URINE OUTPUT DECREASED [None]
  - VENTRICULAR FIBRILLATION [None]
